FAERS Safety Report 8537731-8 (Version None)
Quarter: 2012Q3

REPORT INFORMATION
  Report Type: 
  Country: None (occurrence: None)
  Receive Date: 20120725
  Receipt Date: 20120719
  Transmission Date: 20120928
  Serious: Yes (Hospitalization)
  Sender: FDA-Public Use
  Company Number: PHHY2012IR062546

PATIENT
  Age: 30 Month
  Sex: Male

DRUGS (1)
  1. METHADONE HYDROCHLORIDE [Suspect]

REACTIONS (9)
  - BRAIN OEDEMA [None]
  - RESTLESSNESS [None]
  - COMA [None]
  - ACCIDENTAL EXPOSURE [None]
  - TONIC CONVULSION [None]
  - LOSS OF CONSCIOUSNESS [None]
  - CONVULSION [None]
  - HYDROCEPHALUS [None]
  - TORTICOLLIS [None]
